FAERS Safety Report 5312288-3 (Version None)
Quarter: 2007Q2

REPORT INFORMATION
  Report Type: 
  Country: None (occurrence: None)
  Receive Date: 20070430
  Receipt Date: 20061023
  Transmission Date: 20071010
  Serious: No
  Sender: FDA-Public Use
  Company Number: 2006UW20463

PATIENT
  Age: 77 Year
  Sex: Female
  Weight: 83 kg

DRUGS (8)
  1. NEXIUM [Suspect]
     Indication: GASTROOESOPHAGEAL REFLUX DISEASE
     Route: 048
  2. CARDIA ST [Concomitant]
  3. SYNTHROID [Concomitant]
  4. DIURETIC [Concomitant]
  5. CRESTOR [Concomitant]
     Route: 048
  6. ASPIRIN [Concomitant]
  7. METFORMIN HCL [Concomitant]
  8. FISH OIL [Concomitant]

REACTIONS (2)
  - GASTROOESOPHAGEAL REFLUX DISEASE [None]
  - REFLUX OESOPHAGITIS [None]
